FAERS Safety Report 4515029-2 (Version None)
Quarter: 2004Q4

REPORT INFORMATION
  Report Type: 
  Country: None (occurrence: None)
  Receive Date: 20041129
  Receipt Date: 20041129
  Transmission Date: 20050328
  Serious: Yes (Hospitalization)
  Sender: FDA-Public Use
  Company Number: None

PATIENT
  Age: 70 Year
  Sex: Male
  Weight: 81.6475 kg

DRUGS (1)
  1. AMIODRONE  200MG [Suspect]
     Dosage: 200 MG DAILY

REACTIONS (5)
  - CARDIAC FAILURE CONGESTIVE [None]
  - CHEST X-RAY ABNORMAL [None]
  - HAEMOPTYSIS [None]
  - LUNG DISORDER [None]
  - VISION BLURRED [None]
